FAERS Safety Report 7204282-2 (Version None)
Quarter: 2010Q4

REPORT INFORMATION
  Report Type: 
  Country: None (occurrence: None)
  Receive Date: 20101220
  Receipt Date: 20101208
  Transmission Date: 20110411
  Serious: Yes (Other)
  Sender: FDA-Public Use
  Company Number: 023658

PATIENT
  Sex: Male
  Weight: 3.9 kg

DRUGS (4)
  1. KEPPRA [Suspect]
     Indication: EPILEPSY
     Dosage: (4000 MG TRANSPLACENTAL)
     Route: 064
     Dates: start: 20100409, end: 20101001
  2. LAMOTRIGINE [Concomitant]
  3. FOLIC ACID [Concomitant]
  4. TAVOR /00273201/ [Concomitant]

REACTIONS (4)
  - BRADYCARDIA NEONATAL [None]
  - DRUG EXPOSURE DURING PREGNANCY [None]
  - NEONATAL RESPIRATORY DISTRESS SYNDROME [None]
  - POOR SUCKING REFLEX [None]
